FAERS Safety Report 11273302 (Version 1)
Quarter: 2015Q2

REPORT INFORMATION
  Report Type: Spontaneous
  Country: US (occurrence: None)
  Receive Date: 20150625
  Receipt Date: 20150625
  Transmission Date: 20150821
  Serious: No
  Sender: FDA-Public Use
  Company Number: A-NJ2015-114148

PATIENT
  Age: 70 Year
  Sex: Male

DRUGS (11)
  1. REVATIO (SILDENAFIL CITRATE) [Concomitant]
  2. XALATAN [Concomitant]
     Active Substance: LATANOPROST
  3. LASIX [Concomitant]
     Active Substance: FUROSEMIDE
  4. PROAIR (FLUTICASONE PROPIONATE) [Concomitant]
     Active Substance: FLUTICASONE PROPIONATE
  5. NORVASC [Concomitant]
     Active Substance: AMLODIPINE BESYLATE
  6. SPIRIVA [Concomitant]
     Active Substance: TIOTROPIUM BROMIDE MONOHYDRATE
  7. PROTONIX [Concomitant]
     Active Substance: PANTOPRAZOLE SODIUM
  8. TRAMADOL [Concomitant]
     Active Substance: TRAMADOL
  9. HYDRALAZINE [Concomitant]
     Active Substance: HYDRALAZINE HYDROCHLORIDE
  10. OPSUMIT [Suspect]
     Active Substance: MACITENTAN
     Indication: PULMONARY HYPERTENSION
     Route: 048
     Dates: start: 20141030
  11. FLONASE [Concomitant]
     Active Substance: FLUTICASONE PROPIONATE

REACTIONS (2)
  - Visual impairment [None]
  - Flushing [None]

NARRATIVE: CASE EVENT DATE: 20150115
